FAERS Safety Report 5244338-7 (Version None)
Quarter: 2007Q1

REPORT INFORMATION
  Report Type: 
  Country: None (occurrence: None)
  Receive Date: 20070222
  Receipt Date: 20070220
  Transmission Date: 20070707
  Serious: Yes (Life-Threatening)
  Sender: FDA-Public Use
  Company Number: 2006AP05316

PATIENT
  Age: 9994 Day
  Sex: Female

DRUGS (6)
  1. SEROQUEL [Suspect]
     Indication: PANIC DISORDER
     Route: 048
     Dates: start: 20060101, end: 20060620
  2. MEILAX [Suspect]
     Indication: PANIC DISORDER
     Route: 048
     Dates: start: 20000101, end: 20050101
  3. PAXIL [Suspect]
     Indication: PANIC DISORDER
     Route: 048
     Dates: start: 20060606, end: 20060620
  4. ROHYPNOL [Suspect]
     Indication: PANIC DISORDER
     Route: 048
     Dates: start: 20060519, end: 20060620
  5. SOLANAX [Suspect]
     Indication: PANIC DISORDER
     Route: 048
     Dates: start: 20060101, end: 20060620
  6. VEGETAMIN A [Suspect]
     Indication: PANIC DISORDER
     Route: 048
     Dates: start: 20060519, end: 20060620

REACTIONS (2)
  - DRUG HYPERSENSITIVITY [None]
  - STEVENS-JOHNSON SYNDROME [None]
